FAERS Safety Report 10039437 (Version 1)
Quarter: 2014Q1

REPORT INFORMATION
  Report Type: Spontaneous
  Country: US (occurrence: None)
  Receive Date: 20140324
  Receipt Date: 20140324
  Transmission Date: 20141002
  Serious: Yes (Death)
  Sender: FDA-Public Use
  Company Number: UTC-046095

PATIENT
  Age: 50 Year
  Sex: Female

DRUGS (2)
  1. TYVASO (0.6 MILLIGRAM/MILLILITERS, AEROSOL FOR INHALATION) (TREPROSTINIL SODIUM) [Suspect]
     Indication: PULMONARY ARTERIAL HYPERTENSION
     Dosage: 18-54 MG (4 IN 1 D), INHALATION
     Dates: start: 20131106
  2. REVATIO (SILDENAFIL CITRATE) [Concomitant]

REACTIONS (1)
  - Death [None]
